FAERS Safety Report 5871462-8 (Version None)
Quarter: 2008Q3

REPORT INFORMATION
  Report Type: 
  Country: None (occurrence: None)
  Receive Date: 20080905
  Receipt Date: 20080211
  Transmission Date: 20090109
  Serious: No
  Sender: FDA-Public Use
  Company Number: A0707187A

PATIENT
  Age: 49 Year
  Sex: Female
  Weight: 56.8 kg

DRUGS (2)
  1. REQUIP [Suspect]
     Indication: PARKINSON'S DISEASE
     Dosage: 2.5MG THREE TIMES PER DAY
     Route: 048
     Dates: start: 20071201
  2. SINEMET [Concomitant]

REACTIONS (2)
  - NAUSEA [None]
  - VOMITING [None]
